FAERS Safety Report 11791269 (Version 1)
Quarter: 2015Q4

REPORT INFORMATION
  Report Type: Spontaneous
  Country: US (occurrence: US)
  Receive Date: 20151201
  Receipt Date: 20151201
  Transmission Date: 20160305
  Serious: No
  Sender: FDA-Public Use
  Company Number: US-GLAXOSMITHKLINE-US2015GSK148765

PATIENT
  Age: 70 Year
  Sex: Female

DRUGS (4)
  1. SUMATRIPTAN SUCCINATE SOLUTION FOR INJECTION IN PRE-FILLED PEN [Suspect]
     Active Substance: SUMATRIPTAN SUCCINATE
     Indication: PRODUCT USED FOR UNKNOWN INDICATION
     Dosage: UNK
  2. IMITREX [Suspect]
     Active Substance: SUMATRIPTAN\SUMATRIPTAN SUCCINATE
     Indication: MIGRAINE
     Dosage: UNK
     Route: 048
  3. IMITREX [Suspect]
     Active Substance: SUMATRIPTAN\SUMATRIPTAN SUCCINATE
     Indication: PRODUCT USED FOR UNKNOWN INDICATION
     Dosage: UNK
  4. SUMATRIPTAN TABLET [Suspect]
     Active Substance: SUMATRIPTAN
     Indication: MIGRAINE
     Dosage: UNK, 6MG/0.5ML

REACTIONS (12)
  - Nausea [Unknown]
  - Abdominal discomfort [Recovered/Resolved]
  - Drug ineffective [Unknown]
  - Migraine [Recovered/Resolved]
  - Discomfort [Recovered/Resolved]
  - Memory impairment [Unknown]
  - Nervousness [Recovered/Resolved]
  - Device use error [Unknown]
  - Needle issue [Unknown]
  - Product quality issue [Unknown]
  - Headache [Unknown]
  - Arthritis [Unknown]

NARRATIVE: CASE EVENT DATE: 201509
